FAERS Safety Report 6572272-9 (Version None)
Quarter: 2010Q1

REPORT INFORMATION
  Report Type: 
  Country: None (occurrence: None)
  Receive Date: 20100205
  Receipt Date: 20100202
  Transmission Date: 20100710
  Serious: Yes (Life-Threatening, Other)
  Sender: FDA-Public Use
  Company Number: PHHY2009DE55599

PATIENT
  Age: 71 Year
  Sex: Male

DRUGS (4)
  1. RASILEZ [Suspect]
     Indication: HYPERTENSION
     Dosage: 150 MG PER DAY
     Route: 048
     Dates: start: 20090529
  2. RASILEZ [Suspect]
     Dosage: 300 MG PER DAY
     Route: 048
     Dates: start: 20090101, end: 20091212
  3. HYDROCHLOROTHIAZIDE [Concomitant]
     Indication: HYPERTENSION
     Dosage: UNK
     Route: 048
     Dates: start: 20090101
  4. DICLOFENAC [Concomitant]

REACTIONS (12)
  - ANGIOEDEMA [None]
  - ANGIOMYOLIPOMA [None]
  - CHEST PAIN [None]
  - CONJUNCTIVITIS [None]
  - DIARRHOEA [None]
  - DYSPNOEA [None]
  - FATIGUE [None]
  - HEPATIC STEATOSIS [None]
  - HYPERHIDROSIS [None]
  - SWELLING FACE [None]
  - SWOLLEN TONGUE [None]
  - VISUAL ACUITY REDUCED [None]
